FAERS Safety Report 9964972 (Version 1)
Quarter: 2014Q1

REPORT INFORMATION
  Report Type: Report from Study
  Country: US (occurrence: US)
  Receive Date: 20140305
  Receipt Date: 20140305
  Transmission Date: 20141002
  Serious: No
  Sender: FDA-Public Use
  Company Number: US-ABBVIE-13P-163-1128527-00

PATIENT
  Age: 64 Year
  Sex: Female
  Weight: 63.56 kg

DRUGS (3)
  1. HUMIRA [Suspect]
     Indication: CROHN^S DISEASE
     Route: 058
     Dates: start: 201305, end: 201305
  2. HUMIRA [Suspect]
     Route: 058
     Dates: start: 201305, end: 201305
  3. HUMIRA [Suspect]
     Route: 058
     Dates: start: 201306

REACTIONS (3)
  - Haemorrhage [Not Recovered/Not Resolved]
  - Nausea [Not Recovered/Not Resolved]
  - Contusion [Not Recovered/Not Resolved]
